FAERS Safety Report 8689574 (Version 2)
Quarter: 2014Q2

REPORT INFORMATION
  Report Type: Spontaneous
  Country: US (occurrence: US)
  Receive Date: 20120727
  Receipt Date: 20140611
  Transmission Date: 20141212
  Serious: No
  Sender: FDA-Public Use
  Company Number: US-ASTRAZENECA-2012SE00615

PATIENT
  Age: 35 Year
  Sex: Female

DRUGS (2)
  1. SEROQUEL XR [Suspect]
     Dosage: PRESCRIBED 300 MG BUT TAKING 400 MG DAILY
     Route: 048
  2. SEROQUEL XR [Suspect]
     Route: 048

REACTIONS (4)
  - Exposure during pregnancy [Unknown]
  - Activities of daily living impaired [Unknown]
  - Incorrect dose administered [Unknown]
  - Drug dose omission [Unknown]
